FAERS Safety Report 15242512 (Version 4)
Quarter: 2019Q3

REPORT INFORMATION
  Report Type: Spontaneous
  Country: US (occurrence: US)
  Receive Date: 20180806
  Receipt Date: 20190923
  Transmission Date: 20191004
  Serious: No
  Sender: FDA-Public Use
  Company Number: US-BAUSCH-BL-2018-019804

PATIENT
  Age: 68 Year
  Sex: Male
  Weight: 81.72 kg

DRUGS (3)
  1. JUBLIA [Suspect]
     Active Substance: EFINACONAZOLE
     Indication: ONYCHOMYCOSIS
     Dosage: APPLIED JUBLIA TO ALL OF HIS TOENAILS DAILY?RAN OUT FOR 2 WEEKS
     Route: 061
     Dates: start: 201702
  2. JUBLIA [Suspect]
     Active Substance: EFINACONAZOLE
     Dosage: ONGOING
     Route: 061
  3. AMLODIPINE [Concomitant]
     Active Substance: AMLODIPINE BESYLATE
     Indication: HYPERTENSION
     Route: 048

REACTIONS (5)
  - Condition aggravated [Not Recovered/Not Resolved]
  - Product use issue [Unknown]
  - Product packaging quantity issue [Unknown]
  - Onychomycosis [Not Recovered/Not Resolved]
  - Drug ineffective [Unknown]

NARRATIVE: CASE EVENT DATE: 201803
